FAERS Safety Report 19259515 (Version 1)
Quarter: 2021Q2

REPORT INFORMATION
  Report Type: Other
  Country: CA (occurrence: CA)
  Receive Date: 20210514
  Receipt Date: 20210514
  Transmission Date: 20210717
  Serious: Yes (Other)
  Sender: FDA-Public Use
  Company Number: CA-APOTEX-2021AP011338

PATIENT
  Sex: Male

DRUGS (1)
  1. APO?DASATINIB [Suspect]
     Active Substance: DASATINIB
     Indication: LEUKAEMIA
     Dosage: 70 MILLIGRAM, QD
     Route: 048
     Dates: start: 20200901

REACTIONS (1)
  - Lung disorder [Unknown]
